FAERS Safety Report 7076925-8 (Version None)
Quarter: 2010Q4

REPORT INFORMATION
  Report Type: 
  Country: None (occurrence: None)
  Receive Date: 20101101
  Receipt Date: 20101020
  Transmission Date: 20110411
  Serious: Yes (Other)
  Sender: FDA-Public Use
  Company Number: NO-WATSON-2010-14090

PATIENT
  Sex: Male

DRUGS (3)
  1. LAMOTRIGINE [Suspect]
     Indication: EPILEPSY
     Dosage: UNK
  2. CAMPTO                             /01280202/ [Suspect]
     Indication: COLORECTAL CANCER METASTATIC
     Dosage: UNK
  3. XELODA [Suspect]
     Indication: COLORECTAL CANCER METASTATIC
     Dosage: UNK

REACTIONS (4)
  - DIARRHOEA [None]
  - DRUG INEFFECTIVE [None]
  - DRUG INTERACTION [None]
  - EPILEPSY [None]
